FAERS Safety Report 4500581-3 (Version None)
Quarter: 2004Q4

REPORT INFORMATION
  Report Type: 
  Country: None (occurrence: None)
  Receive Date: 20041115
  Receipt Date: 20040810
  Transmission Date: 20050328
  Serious: Yes (Hospitalization, Other)
  Sender: FDA-Public Use
  Company Number: AU-ABBOTT-04P-008-0270076-00

PATIENT
  Sex: Male
  Weight: 97.3 kg

DRUGS (8)
  1. SIBUTRAMINE [Suspect]
     Indication: OBESITY
     Route: 048
     Dates: start: 20040707, end: 20040805
  2. AMIODARONE HYDROCHLORIDE [Concomitant]
     Indication: TACHYCARDIA
     Dates: start: 19890101
  3. FUROSEMIDE [Concomitant]
     Indication: HYPERTENSION
     Dates: start: 20030101
  4. ATORVASTATIN CALCIUM [Concomitant]
     Indication: DYSLIPIDAEMIA
     Dates: start: 19980101
  5. ATORVASTATIN CALCIUM [Concomitant]
     Dates: start: 20040601, end: 20040806
  6. ATORVASTATIN CALCIUM [Concomitant]
     Dates: start: 20040807
  7. GOPTON [Concomitant]
     Indication: HYPERTENSION
     Dates: start: 20030101
  8. ACETYLSALICYLIC ACID [Concomitant]
     Indication: THROMBOSIS PROPHYLAXIS
     Dates: start: 20030101

REACTIONS (3)
  - GASTROENTERITIS [None]
  - INFECTION [None]
  - RHABDOMYOLYSIS [None]
